FAERS Safety Report 15681691 (Version 6)
Quarter: 2019Q1

REPORT INFORMATION
  Report Type: Report from Study
  Country: None (occurrence: BE)
  Receive Date: 20181203
  Receipt Date: 20190308
  Transmission Date: 20190417
  Serious: Yes (Hospitalization)
  Sender: FDA-Public Use
  Company Number: BE-ABBVIE-18S-013-2575261-00

PATIENT
  Age: 74 Year
  Sex: Male

DRUGS (10)
  1. DUODOPA [Suspect]
     Active Substance: CARBIDOPA\LEVODOPA
     Dosage: DOSES CONTINUOUSLY MONITORED AND ADAPTED
     Route: 050
     Dates: start: 20180223, end: 20180716
  2. DUODOPA [Suspect]
     Active Substance: CARBIDOPA\LEVODOPA
     Dosage: MD= 10ML; CD= 3.8ML/HR DURING 16HRS;ED= 0ML
     Route: 050
     Dates: start: 20181128
  3. PROLOPA 250 [Concomitant]
     Dosage: FORM STRENGTH: 200MG/50MG RESCUE MEDICATION
  4. AZILECT [Concomitant]
     Active Substance: RASAGILINE MESYLATE
     Indication: PARKINSON^S DISEASE
     Route: 048
  5. PANTOMED [Concomitant]
     Indication: PRODUCT USED FOR UNKNOWN INDICATION
  6. DUODOPA [Suspect]
     Active Substance: CARBIDOPA\LEVODOPA
     Indication: PARKINSON^S DISEASE
     Dosage: MD=10ML CD=3.5ML/HR DURING 16HRS  ED=4ML
     Route: 050
     Dates: start: 20180115, end: 20180223
  7. PROLOPA 250 [Concomitant]
     Indication: PARKINSON^S DISEASE
     Dosage: FORM STRENGTH: 200MG/50MG; UNIT DOSE: 1 TABLET
     Route: 048
  8. AZILECT [Concomitant]
     Active Substance: RASAGILINE MESYLATE
     Dates: start: 20180315
  9. DUODOPA [Suspect]
     Active Substance: CARBIDOPA\LEVODOPA
     Dosage: MD=12ML CD=4.7ML/HR DURING 16HRS  ED=4ML
     Route: 050
     Dates: start: 20180716, end: 20181126
  10. DUODOPA [Suspect]
     Active Substance: CARBIDOPA\LEVODOPA
     Dosage: MD=12ML CD=4ML/HR DURING 16HRS  ED=0ML
     Route: 050
     Dates: start: 20181126, end: 20181128

REACTIONS (3)
  - Compulsive shopping [Recovering/Resolving]
  - Abnormal behaviour [Recovering/Resolving]
  - Intentional product misuse [Not Recovered/Not Resolved]

NARRATIVE: CASE EVENT DATE: 201810
